FAERS Safety Report 7770682 (Version 3)
Quarter: 2014Q1

REPORT INFORMATION
  Report Type: Spontaneous
  Country: US (occurrence: US)
  Receive Date: 20110124
  Receipt Date: 20140116
  Transmission Date: 20141002
  Serious: Yes (Other)
  Sender: FDA-Public Use
  Company Number: US-BAYER-2011-007234

PATIENT
  Age: 22 Year
  Sex: Female
  Weight: 109 kg

DRUGS (13)
  1. YASMIN [Suspect]
     Indication: CONTRACEPTION
     Dosage: UNK
     Route: 048
     Dates: start: 2007, end: 200807
  2. YASMIN [Suspect]
     Indication: MENSTRUAL CYCLE MANAGEMENT
  3. LISINOPRIL [Concomitant]
  4. ADVAIR [Concomitant]
     Indication: ASTHMA
     Dosage: 500/50, 1 PUFF, BID
     Route: 045
  5. SINGULAIR [Concomitant]
     Indication: ASTHMA
     Dosage: 10 MG, DAILY
     Dates: start: 2000
  6. ALBUTEROL [Concomitant]
     Indication: ASTHMA
     Dosage: 3 ML, EVERY 6 HOURS
     Dates: start: 1986
  7. SYMBICORT [Concomitant]
     Indication: ASTHMA
     Dosage: 2 PUFFS, BID
     Route: 045
     Dates: start: 2008
  8. ZOFRAN [Concomitant]
     Indication: NAUSEA
     Dosage: 4 MG, IV PUSH
     Dates: start: 20090101
  9. OMEPRAZOLE [Concomitant]
     Dosage: 20 MG, DAILY
     Route: 048
     Dates: start: 20090101
  10. CIPRO [Concomitant]
     Dosage: 500 MG, EVERY 12 HOURS
     Route: 048
     Dates: start: 20090408
  11. TRAZODONE [Concomitant]
     Indication: INSOMNIA
     Dosage: 100 MG, HS
     Route: 048
  12. ZYRTEC [Concomitant]
     Indication: RHINITIS ALLERGIC
     Dosage: 10 MG, ONCE
     Route: 048
  13. ESCITALOPRAM OXALATE [Concomitant]
     Dosage: 10 MG, UNK

REACTIONS (5)
  - Gallbladder disorder [None]
  - Cholecystitis chronic [None]
  - Biliary dyskinesia [None]
  - Abdominal pain [None]
  - Emotional distress [None]
